FAERS Safety Report 10064635 (Version 1)
Quarter: 2014Q2

REPORT INFORMATION
  Report Type: Spontaneous
  Country: US (occurrence: None)
  Receive Date: 20140407
  Receipt Date: 20140407
  Transmission Date: 20141212
  Serious: Yes (Other)
  Sender: FDA-Public Use
  Company Number: None

PATIENT
  Sex: Female

DRUGS (3)
  1. GLEEVEC [Suspect]
     Indication: GASTROINTESTINAL CARCINOMA
     Route: 048
     Dates: start: 20131223, end: 20140319
  2. GLEEVEC [Suspect]
     Indication: MALIGNANT CONNECTIVE TISSUE NEOPLASM
     Route: 048
     Dates: start: 20131223, end: 20140319
  3. GLEEVEC [Suspect]
     Indication: SOFT TISSUE SARCOMA
     Route: 048
     Dates: start: 20131223, end: 20140319

REACTIONS (1)
  - Hypersensitivity [None]
